FAERS Safety Report 8014096-1 (Version None)
Quarter: 2011Q4

REPORT INFORMATION
  Report Type: 
  Country: None (occurrence: None)
  Receive Date: 20111229
  Receipt Date: 20111222
  Transmission Date: 20120403
  Serious: Yes (Hospitalization)
  Sender: FDA-Public Use
  Company Number: US-MPIJNJ-2011-06567

PATIENT
  Age: 42 Year
  Sex: Female

DRUGS (1)
  1. VELCADE [Suspect]
     Indication: MULTIPLE MYELOMA
     Dosage: 2.8 MG, CYCLIC
     Route: 042
     Dates: start: 20110714, end: 20110725

REACTIONS (9)
  - RETINAL HAEMORRHAGE [None]
  - LEUKOCYTOSIS [None]
  - SYSTEMIC INFLAMMATORY RESPONSE SYNDROME [None]
  - PAPILLOEDEMA [None]
  - ANAEMIA [None]
  - LEUKAEMIA PLASMACYTIC [None]
  - PYREXIA [None]
  - HAEMATOMA [None]
  - THROMBOCYTOPENIA [None]
